FAERS Safety Report 4596825-2 (Version None)
Quarter: 2005Q1

REPORT INFORMATION
  Report Type: 
  Country: None (occurrence: None)
  Receive Date: 20050228
  Receipt Date: 20050217
  Transmission Date: 20050727
  Serious: Yes (Other)
  Sender: FDA-Public Use
  Company Number: 2005032252

PATIENT
  Sex: Female

DRUGS (1)
  1. CAMPTOSAR [Suspect]
     Indication: RECTAL CANCER
     Dates: start: 20031001

REACTIONS (2)
  - FEMALE GENITAL-DIGESTIVE TRACT FISTULA [None]
  - RADIATION INJURY [None]
